FAERS Safety Report 21480816 (Version 2)
Quarter: 2022Q4

REPORT INFORMATION
  Report Type: Report from Study
  Country: US (occurrence: US)
  Receive Date: 20221019
  Receipt Date: 20221226
  Transmission Date: 20230112
  Serious: No
  Sender: FDA-Public Use
  Company Number: US-ABBVIE-4146820

PATIENT
  Sex: Female

DRUGS (6)
  1. HUMIRA [Suspect]
     Active Substance: ADALIMUMAB
     Indication: Rheumatoid arthritis
     Dosage: CITRATE FREE, START DATE TEXT: OCTOBER OR DECEMBER 2013
     Route: 058
     Dates: start: 2013
  2. HUMIRA [Suspect]
     Active Substance: ADALIMUMAB
     Dosage: CITRATE FREE
     Route: 058
  3. Pfizer/BioNTech [Concomitant]
     Indication: COVID-19 immunisation
     Dosage: 1ST DOSE, ONE IN ONCE
     Route: 030
     Dates: start: 20210220, end: 20210220
  4. Pfizer/BioNTech [Concomitant]
     Indication: COVID-19 immunisation
     Dosage: 2ND DOSE, ONE IN ONCE
     Route: 030
     Dates: start: 20210313, end: 20210313
  5. Pfizer/BioNTech [Concomitant]
     Indication: COVID-19 immunisation
     Dosage: 3RD DOSE BOOSTER  DOSE, ONE IN ONCE
     Route: 030
     Dates: start: 20211110, end: 20211110
  6. PLAQUENIL [Suspect]
     Active Substance: HYDROXYCHLOROQUINE SULFATE
     Indication: Product used for unknown indication
     Route: 065

REACTIONS (5)
  - Osteoarthritis [Unknown]
  - Injection site haemorrhage [Unknown]
  - Pruritus [Unknown]
  - Pigmentation disorder [Unknown]
  - Drug ineffective [Unknown]
